FAERS Safety Report 4900055-1 (Version None)
Quarter: 2006Q1

REPORT INFORMATION
  Report Type: 
  Country: None (occurrence: None)
  Receive Date: 20060203
  Receipt Date: 20060126
  Transmission Date: 20060701
  Serious: Yes (Hospitalization)
  Sender: FDA-Public Use
  Company Number: JP-BOEHRINGER INGELHEIM PHARMACEUTICALS, INC.-2006-BP-01000NB

PATIENT
  Age: 84 Year
  Sex: Male

DRUGS (8)
  1. SPIRIVA [Suspect]
     Indication: EMPHYSEMA
     Route: 055
     Dates: start: 20060105, end: 20060118
  2. CONIEL [Concomitant]
     Route: 048
  3. BASEN [Concomitant]
     Route: 048
  4. AMARYL [Concomitant]
     Route: 048
  5. PLETAL [Concomitant]
     Route: 048
  6. LENDORMIN [Concomitant]
     Route: 048
  7. PANGREEN-P (PIPETHANATE HYDROCHLORIDE/LICORICE EDUCATION/MAGNESIUM ALU [Concomitant]
     Route: 048
  8. FUZULEBAN [Concomitant]
     Route: 048

REACTIONS (1)
  - CARDIAC FAILURE [None]
